FAERS Safety Report 12342012 (Version 1)
Quarter: 2016Q2

REPORT INFORMATION
  Report Type: Not Available
  Country: CH (occurrence: CH)
  Receive Date: 20160506
  Receipt Date: 20160506
  Transmission Date: 20160815
  Serious: Yes (Hospitalization)
  Sender: FDA-Public Use
  Company Number: CH-NAPPMUNDI-GBR-2016-0035845

PATIENT
  Age: 85 Year
  Sex: Female

DRUGS (12)
  1. TAVANIC [Concomitant]
     Active Substance: LEVOFLOXACIN
     Dosage: 500 MG, BID
     Route: 042
     Dates: start: 20160401, end: 20160411
  2. VENLAFAXINE [Interacting]
     Active Substance: VENLAFAXINE HYDROCHLORIDE
     Indication: DEPRESSION
     Dosage: 150 MG, DAILY
     Route: 048
     Dates: end: 20160410
  3. CLEXANE [Concomitant]
     Active Substance: ENOXAPARIN SODIUM
     Dosage: 40 MG, DAILY
     Route: 058
     Dates: start: 20160315
  4. DAFALGAN [Concomitant]
     Active Substance: ACETAMINOPHEN
     Dosage: 1000 MG, TID
     Route: 048
     Dates: start: 20160314
  5. CLINDAMYCIN [Concomitant]
     Active Substance: CLINDAMYCIN\CLINDAMYCIN PHOSPHATE
     Dosage: 600 MG, TID
     Route: 042
     Dates: start: 20160401, end: 20160411
  6. DISTRANEURIN                       /00027502/ [Concomitant]
     Active Substance: CLOMETHIAZOLE
     Dosage: 300 MG, DAILY
     Route: 048
     Dates: start: 20160322, end: 20160410
  7. NEXIUM [Concomitant]
     Active Substance: ESOMEPRAZOLE MAGNESIUM
     Dosage: 40 MG, DAILY
     Route: 048
     Dates: start: 20160322, end: 20160411
  8. SEVREDOL FILMTABLETTEN [Suspect]
     Active Substance: MORPHINE SULFATE
     Indication: PAIN
     Dosage: 5 MG, QID
     Route: 048
     Dates: start: 20160408, end: 20160410
  9. FENTANYL. [Interacting]
     Active Substance: FENTANYL
     Indication: PAIN
     Dosage: 100 MCG, DAILY
     Route: 042
     Dates: start: 20160407, end: 20160408
  10. ALDACTONE [Concomitant]
     Active Substance: SPIRONOLACTONE
     Dosage: 25 MG, DAILY
     Route: 048
     Dates: start: 20160331
  11. LASIX [Concomitant]
     Active Substance: FUROSEMIDE
     Dosage: 20 MG, BID
     Route: 042
     Dates: start: 20160322
  12. TRAMAL [Interacting]
     Active Substance: TRAMADOL
     Indication: PAIN
     Dosage: 50 MG, 1 PER 1 TOTAL
     Route: 048
     Dates: start: 20160405, end: 20160405

REACTIONS (7)
  - Pyrexia [Recovered/Resolved]
  - Serotonin syndrome [Recovered/Resolved]
  - Agitation [Recovered/Resolved]
  - Confusional state [Recovered/Resolved]
  - Drug interaction [Recovered/Resolved]
  - Muscle rigidity [Recovered/Resolved]
  - Clonus [Recovered/Resolved]

NARRATIVE: CASE EVENT DATE: 20160409
